FAERS Safety Report 12886857 (Version 1)
Quarter: 2016Q4

REPORT INFORMATION
  Report Type: Spontaneous
  Country: ES (occurrence: ES)
  Receive Date: 20161026
  Receipt Date: 20161026
  Transmission Date: 20170207
  Serious: Yes (Life-Threatening, Disabling, Other)
  Sender: FDA-Public Use
  Company Number: ES-JNJFOC-20161022608

PATIENT
  Age: 40 Year
  Sex: Male
  Weight: 70 kg

DRUGS (5)
  1. ESCITALOPRAM [Concomitant]
     Active Substance: ESCITALOPRAM OXALATE
     Indication: OSTEOPOROSIS
     Route: 048
     Dates: start: 20151029
  2. IMUREL [Suspect]
     Active Substance: AZATHIOPRINE SODIUM
     Indication: CROHN^S DISEASE
     Dosage: (IMUREL) 50 MG
     Route: 048
     Dates: start: 20061130, end: 20161005
  3. ESCITALOPRAM [Concomitant]
     Active Substance: ESCITALOPRAM OXALATE
     Indication: DEPRESSION
     Route: 048
     Dates: start: 20151029
  4. RISEDRONATO [Concomitant]
     Indication: OSTEOPOROSIS
     Route: 048
     Dates: start: 20160111
  5. REMICADE [Suspect]
     Active Substance: INFLIXIMAB
     Indication: CROHN^S DISEASE
     Dosage: STRENGHT:100 MG
     Route: 042
     Dates: start: 20140101, end: 20161005

REACTIONS (1)
  - Renal cell carcinoma [Not Recovered/Not Resolved]

NARRATIVE: CASE EVENT DATE: 20160930
